FAERS Safety Report 6311504-9 (Version None)
Quarter: 2009Q3

REPORT INFORMATION
  Report Type: 
  Country: None (occurrence: None)
  Receive Date: 20090817
  Receipt Date: 20090806
  Transmission Date: 20100115
  Serious: Yes (Hospitalization)
  Sender: FDA-Public Use
  Company Number: PHHO2009DE09767

PATIENT
  Sex: Male
  Weight: 93 kg

DRUGS (4)
  1. RAD 666 RAD+TAB [Suspect]
     Indication: RENAL TRANSPLANT
     Dosage: 0.5 MG, BID
     Route: 048
     Dates: start: 20080915
  2. NEORAL [Suspect]
     Indication: RENAL TRANSPLANT
     Dosage: 60 MG, BID
     Route: 048
     Dates: start: 20080915
  3. NEORAL [Suspect]
     Dosage: DOSE ADJUSTED
     Route: 048
  4. URBASON [Suspect]
     Indication: RENAL TRANSPLANT
     Dosage: 4 MG, QD
     Route: 048
     Dates: start: 20080915

REACTIONS (3)
  - BLOOD CREATININE INCREASED [None]
  - HYDRONEPHROSIS [None]
  - NEPHROPATHY TOXIC [None]
